FAERS Safety Report 26096831 (Version 1)
Quarter: 2025Q4

REPORT INFORMATION
  Report Type: Spontaneous
  Country: US (occurrence: US)
  Receive Date: 20251127
  Receipt Date: 20251127
  Transmission Date: 20260117
  Serious: No
  Sender: ROCHE
  Company Number: US-ROCHE-10000443601

PATIENT
  Age: 44 Year
  Sex: Male

DRUGS (4)
  1. RITUXIMAB [Suspect]
     Active Substance: RITUXIMAB
     Indication: Glomerulonephritis membranous
     Dosage: 2 DOSES
     Route: 042
  2. LOSARTAN [Concomitant]
     Active Substance: LOSARTAN
  3. BORTEZOMIB [Concomitant]
     Active Substance: BORTEZOMIB
     Route: 042
  4. DEXAMETHASONE [Concomitant]
     Active Substance: DEXAMETHASONE

REACTIONS (2)
  - Treatment failure [Unknown]
  - No adverse event [Unknown]
